FAERS Safety Report 16242351 (Version 10)
Quarter: 2020Q1

REPORT INFORMATION
  Report Type: Spontaneous
  Country: CA (occurrence: CA)
  Receive Date: 20190426
  Receipt Date: 20200128
  Transmission Date: 20200409
  Serious: Yes (Hospitalization, Other)
  Sender: FDA-Public Use
  Company Number: CA-TEVA-2019-CA-1041136

PATIENT
  Age: 77 Year
  Sex: Female

DRUGS (87)
  1. AMITRIPTYLINE [Suspect]
     Active Substance: AMITRIPTYLINE
     Dosage: 75 MILLIGRAM DAILY;
     Route: 065
  2. APO-CYCLOBENZAPRINE [Suspect]
     Active Substance: CYCLOBENZAPRINE
     Indication: FIBROMYALGIA
     Dosage: 15 MILLIGRAM DAILY;
     Route: 065
  3. APO-DILTIAZ [Suspect]
     Active Substance: DILTIAZEM HYDROCHLORIDE
     Indication: ANGINA PECTORIS
     Dosage: 360 MILLIGRAM DAILY;
     Route: 065
  4. AVA-FUROSEMIDE [Suspect]
     Active Substance: FUROSEMIDE SODIUM
     Indication: OEDEMA
     Dosage: 40 MILLIGRAM DAILY;
     Route: 065
  5. GLUCOSAMINE [Suspect]
     Active Substance: GLUCOSAMINE
     Indication: ARTHRITIS
     Dosage: 1000 MILLIGRAM DAILY;
     Route: 065
  6. NITROGLYCERIN. [Suspect]
     Active Substance: NITROGLYCERIN
     Indication: CORONARY ARTERY DISEASE
     Route: 061
  7. AGGRENOX [Suspect]
     Active Substance: ASPIRIN\DIPYRIDAMOLE
     Dosage: 2 DOSAGE FORMS DAILY;
     Route: 065
  8. GALANTAMINE. [Suspect]
     Active Substance: GALANTAMINE
     Indication: DEMENTIA
     Dosage: 16 MILLIGRAM DAILY;
     Route: 065
  9. ACEBUTOLOL HYDROCHLORIDE. [Suspect]
     Active Substance: ACEBUTOLOL HYDROCHLORIDE
     Indication: HYPERTENSION
     Dosage: 100 MILLIGRAM DAILY;
     Route: 065
  10. AMLODIPINE BESILATE [Suspect]
     Active Substance: AMLODIPINE BESYLATE
     Indication: ANGINA PECTORIS
     Dosage: 5 MILLIGRAM DAILY;
     Route: 065
  11. AMLODIPINE BESILATE [Suspect]
     Active Substance: AMLODIPINE BESYLATE
     Route: 065
  12. DILTIAZEM. [Suspect]
     Active Substance: DILTIAZEM
     Indication: HYPERTENSION
     Dosage: 360 MILLIGRAM DAILY;
     Route: 065
  13. NITROGLYCERIN. [Suspect]
     Active Substance: NITROGLYCERIN
     Dosage: 1 DOSAGE FORMS DAILY;
     Route: 065
  14. OXAZEPAM. [Suspect]
     Active Substance: OXAZEPAM
     Indication: CORONARY ARTERY DISEASE
     Route: 065
  15. QUINAPRIL HYDROCHLORIDE. [Suspect]
     Active Substance: QUINAPRIL HYDROCHLORIDE
     Route: 065
  16. AGGRENOX [Suspect]
     Active Substance: ASPIRIN\DIPYRIDAMOLE
     Indication: CEREBROVASCULAR ACCIDENT
     Dosage: 2 DOSAGE FORMS DAILY;
     Route: 065
  17. ACETAMINOPHEN. [Concomitant]
     Active Substance: ACETAMINOPHEN
     Indication: FIBROMYALGIA
     Route: 065
  18. ACEBUTOLOL HYDROCHLORIDE. [Suspect]
     Active Substance: ACEBUTOLOL HYDROCHLORIDE
     Indication: CHEST PAIN
     Route: 065
  19. ACEBUTOLOL HYDROCHLORIDE. [Suspect]
     Active Substance: ACEBUTOLOL HYDROCHLORIDE
     Dosage: 400 MILLIGRAM DAILY;
     Route: 065
  20. AMLODIPINE BESILATE [Suspect]
     Active Substance: AMLODIPINE BESYLATE
     Indication: CORONARY ARTERY DISEASE
     Route: 065
  21. FUROSEMIDE. [Suspect]
     Active Substance: FUROSEMIDE
     Indication: OEDEMA
     Dosage: 40 MILLIGRAM DAILY;
     Route: 065
  22. ACETAMINOPHEN. [Suspect]
     Active Substance: ACETAMINOPHEN
     Indication: PAIN
     Route: 065
  23. OMEPRAZOLE. [Suspect]
     Active Substance: OMEPRAZOLE
     Indication: DUODENAL ULCER
     Dosage: 20 MILLIGRAM DAILY;
     Route: 065
  24. SALBUTAMOL [Suspect]
     Active Substance: ALBUTEROL
     Dosage: 1600 MICROGRAM DAILY;
     Route: 065
  25. ROSUVASTATIN. [Suspect]
     Active Substance: ROSUVASTATIN
     Indication: CEREBROVASCULAR ACCIDENT
     Dosage: 40 MILLIGRAM DAILY;
     Route: 065
  26. APO-CARBAMAZEPINE CR [Suspect]
     Active Substance: CARBAMAZEPINE
     Indication: PROPHYLAXIS
     Dosage: 400 MILLIGRAM DAILY; TABLET (EXTENDEDRELEASE)
     Route: 065
  27. GLUCOSAMINE [Suspect]
     Active Substance: GLUCOSAMINE
     Indication: PAIN
     Route: 065
  28. GLUCOSAMINE [Suspect]
     Active Substance: GLUCOSAMINE
     Dosage: 500 MILLIGRAM DAILY;
     Route: 065
  29. NITROGLYCERIN. [Suspect]
     Active Substance: NITROGLYCERIN
     Indication: CHEST PAIN
     Route: 065
  30. NITROGLYCERIN. [Suspect]
     Active Substance: NITROGLYCERIN
     Route: 061
  31. OXAZEPAM. [Suspect]
     Active Substance: OXAZEPAM
     Indication: INSOMNIA
     Dosage: 15 MILLIGRAM DAILY;
     Route: 065
  32. QUINAPRIL HYDROCHLORIDE. [Suspect]
     Active Substance: QUINAPRIL HYDROCHLORIDE
     Indication: HYPERTENSION
     Dosage: 40 MILLIGRAM DAILY;
     Route: 065
  33. BISACODYL. [Suspect]
     Active Substance: BISACODYL
     Indication: CONSTIPATION
     Route: 065
  34. DIPYRIDAMOLE. [Suspect]
     Active Substance: DIPYRIDAMOLE
     Indication: CEREBROVASCULAR ACCIDENT
     Dosage: 2 DOSAGE FORMS DAILY;
     Route: 065
  35. ACETYLSALICYLIC ACID;DIPYRIDAMOLE [Concomitant]
  36. ASCORBIC ACID;VACCINIUM MACROCARPON [Concomitant]
     Route: 065
  37. PSYLLIUM HUSK USP [Concomitant]
     Active Substance: PSYLLIUM HUSK
     Indication: CONSTIPATION
     Route: 065
  38. ACEBUTOLOL HYDROCHLORIDE. [Suspect]
     Active Substance: ACEBUTOLOL HYDROCHLORIDE
     Indication: ANGINA PECTORIS
     Dosage: 400 MILLIGRAM DAILY;
     Route: 065
  39. ACEBUTOLOL HYDROCHLORIDE. [Suspect]
     Active Substance: ACEBUTOLOL HYDROCHLORIDE
     Route: 065
  40. AMLODIPINE BESILATE [Suspect]
     Active Substance: AMLODIPINE BESYLATE
     Indication: HYPERTENSION
     Dosage: 5 MILLIGRAM DAILY;
     Route: 065
  41. AMLODIPINE BESILATE [Suspect]
     Active Substance: AMLODIPINE BESYLATE
     Route: 065
  42. DILTIAZEM. [Suspect]
     Active Substance: DILTIAZEM
     Indication: CORONARY ARTERY DISEASE
     Route: 065
  43. MAGNESIUM HYDROXIDE. [Suspect]
     Active Substance: MAGNESIUM HYDROXIDE
     Indication: CONSTIPATION
     Route: 065
  44. MORPHINE SULFATE. [Suspect]
     Active Substance: MORPHINE SULFATE
     Indication: PAIN
     Dosage: 10 MILLIGRAM DAILY;
     Route: 065
  45. SALBUTAMOL [Suspect]
     Active Substance: ALBUTEROL
     Indication: PRODUCT USED FOR UNKNOWN INDICATION
     Route: 065
  46. CARBAMAZEPINE. [Suspect]
     Active Substance: CARBAMAZEPINE
     Indication: PRODUCT USED FOR UNKNOWN INDICATION
     Dosage: 2 DOSAGE FORMS DAILY;
     Route: 065
  47. CYCLOBENZAPRINE. [Suspect]
     Active Substance: CYCLOBENZAPRINE
     Dosage: 400 MILLIGRAM DAILY;
     Route: 065
  48. DIPYRIDAMOLE. [Suspect]
     Active Substance: DIPYRIDAMOLE
     Route: 065
  49. ACETAMINOPHEN. [Concomitant]
     Active Substance: ACETAMINOPHEN
     Indication: PAIN
     Route: 065
  50. FIBRE SOLUBLE/GLYCEROL/PHOSPHORICACID/POTASSIUMSORBATE/SODIUMBENZOATE [Concomitant]
     Indication: CONSTIPATION
     Route: 065
  51. SPIRIVA [Concomitant]
     Active Substance: TIOTROPIUM BROMIDE MONOHYDRATE
     Indication: PRODUCT USED FOR UNKNOWN INDICATION
  52. ACEBUTOLOL HYDROCHLORIDE. [Suspect]
     Active Substance: ACEBUTOLOL HYDROCHLORIDE
     Dosage: 200 MILLIGRAM DAILY;
     Route: 065
  53. MORPHINE SULFATE. [Suspect]
     Active Substance: MORPHINE SULFATE
     Indication: FIBROMYALGIA
     Route: 065
  54. AMLODIPINE [Suspect]
     Active Substance: AMLODIPINE BESYLATE
     Indication: CORONARY ARTERY DISEASE
     Route: 065
  55. MORPHINE [Suspect]
     Active Substance: MORPHINE
     Indication: PAIN
     Dosage: 10 MILLIGRAM DAILY;
     Route: 065
  56. ACETAMINOPHEN/CAFFEINE [Suspect]
     Active Substance: ACETAMINOPHEN\CAFFEINE
     Indication: PAIN
     Dosage: 650 MILLIGRAM DAILY;
     Route: 065
  57. APO-DILTIAZ [Suspect]
     Active Substance: DILTIAZEM HYDROCHLORIDE
     Indication: HYPERTENSION
     Route: 065
  58. NITROGLYCERIN. [Suspect]
     Active Substance: NITROGLYCERIN
     Route: 065
  59. TIOTROPIUM BROMIDE [Suspect]
     Active Substance: TIOTROPIUM BROMIDE
     Indication: CHRONIC OBSTRUCTIVE PULMONARY DISEASE
     Dosage: 18 MICROGRAM DAILY;
     Route: 065
  60. TIOTROPIUM BROMIDE [Suspect]
     Active Substance: TIOTROPIUM BROMIDE
     Route: 065
  61. AMITRIPTYLINE [Suspect]
     Active Substance: AMITRIPTYLINE
     Indication: INSOMNIA
     Dosage: 50 MILLIGRAM DAILY;
     Route: 065
  62. LACTULOSE. [Suspect]
     Active Substance: LACTULOSE
     Indication: CONSTIPATION
     Route: 048
  63. CARBAMAZEPINE. [Suspect]
     Active Substance: CARBAMAZEPINE
     Indication: SEIZURE
     Dosage: 400 MILLIGRAM DAILY;
     Route: 065
  64. APO-OXAZEPAM [Suspect]
     Active Substance: OXAZEPAM
     Indication: INSOMNIA
     Dosage: 15 MILLIGRAM DAILY;
     Route: 065
  65. LEVOTHYROXINE. [Suspect]
     Active Substance: LEVOTHYROXINE
     Indication: THYROID DISORDER
     Dosage: .088 MILLIGRAM DAILY;
     Route: 065
  66. OXAZEPAM. [Suspect]
     Active Substance: OXAZEPAM
     Indication: HYPERTENSION
     Dosage: 40 MILLIGRAM DAILY;
     Route: 065
  67. QUINAPRIL. [Suspect]
     Active Substance: QUINAPRIL
     Indication: CORONARY ARTERY DISEASE
     Dosage: 20 MILLIGRAM DAILY;
     Route: 065
  68. CRANBERRY. [Suspect]
     Active Substance: CRANBERRY
     Indication: BLADDER DISORDER
     Dosage: 1500 MILLIGRAM DAILY;
     Route: 065
  69. CRANBERRY. [Concomitant]
     Active Substance: CRANBERRY
  70. ACEBUTOLOL HYDROCHLORIDE. [Suspect]
     Active Substance: ACEBUTOLOL HYDROCHLORIDE
     Indication: CORONARY ARTERY DISEASE
     Route: 065
  71. DILTIAZEM. [Suspect]
     Active Substance: DILTIAZEM
     Indication: CHEST PAIN
     Route: 065
  72. LACTULOSE. [Suspect]
     Active Substance: LACTULOSE
     Indication: CONSTIPATION
     Route: 065
  73. LEVOFLOXACIN. [Suspect]
     Active Substance: LEVOFLOXACIN
     Indication: URINARY TRACT INFECTION
     Dosage: 250 MILLIGRAM DAILY;
     Route: 065
  74. APO-AMITRIPTYLINE [Suspect]
     Active Substance: AMITRIPTYLINE HYDROCHLORIDE
     Indication: INSOMNIA
     Dosage: 75 MILLIGRAM DAILY;
     Route: 065
  75. APO-DILTIAZ [Suspect]
     Active Substance: DILTIAZEM HYDROCHLORIDE
     Indication: CORONARY ARTERY DISEASE
     Route: 065
  76. CYCLOBENZAPRINE. [Suspect]
     Active Substance: CYCLOBENZAPRINE
     Indication: SEIZURE PROPHYLAXIS
     Dosage: 10 MILLIGRAM DAILY;
     Route: 065
  77. ASPIRIN [ACETYLSALICYLIC ACID] [Concomitant]
     Active Substance: ASPIRIN
     Route: 065
  78. AMITRIPTYLINE [Suspect]
     Active Substance: AMITRIPTYLINE
     Dosage: 75 MILLIGRAM DAILY;
     Route: 065
  79. CARBAMAZEPINE. [Suspect]
     Active Substance: CARBAMAZEPINE
     Indication: SEIZURE PROPHYLAXIS
     Dosage: 200 MILLIGRAM DAILY;
     Route: 065
  80. LEVOTHYROXINE. [Suspect]
     Active Substance: LEVOTHYROXINE
     Indication: RADIOACTIVE IODINE THERAPY
     Route: 065
  81. NITROGLYCERIN. [Suspect]
     Active Substance: NITROGLYCERIN
     Indication: ANGINA PECTORIS
     Route: 065
  82. NITROGLYCERIN. [Suspect]
     Active Substance: NITROGLYCERIN
     Route: 065
  83. QUINAPRIL HYDROCHLORIDE. [Suspect]
     Active Substance: QUINAPRIL HYDROCHLORIDE
     Indication: CORONARY ARTERY DISEASE
     Route: 065
  84. SPIRIVA [Suspect]
     Active Substance: TIOTROPIUM BROMIDE MONOHYDRATE
     Indication: CHRONIC OBSTRUCTIVE PULMONARY DISEASE
     Route: 065
  85. CYCLOBENZAPRINE. [Suspect]
     Active Substance: CYCLOBENZAPRINE
     Indication: PAIN
     Dosage: 1.87 MILLIGRAM DAILY;
  86. CYCLOBENZAPRINE. [Suspect]
     Active Substance: CYCLOBENZAPRINE
     Indication: FIBROMYALGIA
     Dosage: 15 MILLIGRAM DAILY;
     Route: 065
  87. CYCLOBENZAPRINE. [Suspect]
     Active Substance: CYCLOBENZAPRINE
     Indication: SEIZURE
     Dosage: 200 MILLIGRAM DAILY;
     Route: 065

REACTIONS (14)
  - Hypotension [Recovering/Resolving]
  - Toxicity to various agents [Recovering/Resolving]
  - Fall [Unknown]
  - Sedation complication [Unknown]
  - Cognitive disorder [Unknown]
  - Pain [Unknown]
  - Creatinine renal clearance decreased [Recovering/Resolving]
  - Depressed level of consciousness [Unknown]
  - Sedation [Recovering/Resolving]
  - Balance disorder [Recovering/Resolving]
  - Blood calcium decreased [Recovering/Resolving]
  - Constipation [Recovering/Resolving]
  - Mobility decreased [Recovering/Resolving]
  - Orthostatic hypotension [Recovering/Resolving]
